FAERS Safety Report 4823750-1 (Version None)
Quarter: 2005Q4

REPORT INFORMATION
  Report Type: 
  Country: None (occurrence: None)
  Receive Date: 20051107
  Receipt Date: 20051028
  Transmission Date: 20060501
  Serious: Yes (Death, Life-Threatening)
  Sender: FDA-Public Use
  Company Number: WAES 0510ESP00039

PATIENT
  Age: 52 Year
  Sex: Female

DRUGS (2)
  1. CANCIDAS [Suspect]
     Indication: FUNGAL INFECTION
     Dosage: 50 MG/DAILY IV
     Route: 042
     Dates: start: 20051019, end: 20051024
  2. TACROLIMUS [Suspect]
     Indication: RENAL TRANSPLANT
     Dates: start: 20050928, end: 20051024

REACTIONS (12)
  - ACINETOBACTER INFECTION [None]
  - ACUTE MYOCARDIAL INFARCTION [None]
  - COMPLICATIONS OF TRANSPLANTED KIDNEY [None]
  - CYTOLYTIC HEPATITIS [None]
  - DEVICE RELATED INFECTION [None]
  - FUNGAL INFECTION [None]
  - HEPATIC FAILURE [None]
  - ISCHAEMIC CARDIOMYOPATHY [None]
  - PNEUMONIA [None]
  - POST PROCEDURAL COMPLICATION [None]
  - RENAL TUBULAR NECROSIS [None]
  - SEPTIC SHOCK [None]
